FAERS Safety Report 19105196 (Version 1)
Quarter: 2021Q2

REPORT INFORMATION
  Report Type: Spontaneous
  Country: CA (occurrence: CA)
  Receive Date: 20210407
  Receipt Date: 20210407
  Transmission Date: 20210717
  Serious: Yes (Death)
  Sender: FDA-Public Use
  Company Number: CA-ROCHE-2802337

PATIENT
  Age: 76 Year
  Sex: Female

DRUGS (31)
  1. CAPECITABINE. [Suspect]
     Active Substance: CAPECITABINE
     Dosage: 14.0 DAYS
     Route: 065
  2. ACETAMINOPHEN. [Concomitant]
     Active Substance: ACETAMINOPHEN
  3. AMIODARONE [Concomitant]
     Active Substance: AMIODARONE
  4. PROPRANOLOL [Concomitant]
     Active Substance: PROPRANOLOL HYDROCHLORIDE
  5. DALTEPARIN [Concomitant]
     Active Substance: DALTEPARIN
  6. HYDROCORTISONE. [Concomitant]
     Active Substance: HYDROCORTISONE
  7. ONDANSETRON [Concomitant]
     Active Substance: ONDANSETRON
  8. SALIVA SUBSTITUTE [Concomitant]
     Active Substance: CARBOXYMETHYLCELLULOSE SODIUM\DEVICE\SORBINICATE
     Route: 048
  9. CAPECITABINE. [Suspect]
     Active Substance: CAPECITABINE
     Indication: PRODUCT USED FOR UNKNOWN INDICATION
     Dosage: 10.0 DAYS
     Route: 065
  10. DIMENHYDRINATE. [Concomitant]
     Active Substance: DIMENHYDRINATE
  11. HEPARIN CALCIUM [Concomitant]
     Active Substance: HEPARIN CALCIUM
     Route: 065
  12. MAGNESIUM SULFATE. [Concomitant]
     Active Substance: MAGNESIUM SULFATE
  13. OCTREOTIDE. [Concomitant]
     Active Substance: OCTREOTIDE
  14. RANITIDINE. [Concomitant]
     Active Substance: RANITIDINE
  15. ANTACID [ALUMINIUM HYDROXIDE;MAGNESIUM HYDROXIDE] [Concomitant]
  16. LOPERAMIDE [Concomitant]
     Active Substance: LOPERAMIDE
  17. MEROPENEM. [Concomitant]
     Active Substance: MEROPENEM
     Route: 042
  18. OLANZAPINE. [Concomitant]
     Active Substance: OLANZAPINE
  19. POTASSIUM CHLORIDE. [Concomitant]
     Active Substance: POTASSIUM CHLORIDE
  20. REFRESH LACRI?LUBE [Concomitant]
     Active Substance: MINERAL OIL\PETROLATUM
     Route: 047
  21. CANDESARTAN. [Concomitant]
     Active Substance: CANDESARTAN
  22. HALOPERIDOL. [Concomitant]
     Active Substance: HALOPERIDOL
  23. JAMP K [Concomitant]
  24. PANTOPRAZOLE [Concomitant]
     Active Substance: PANTOPRAZOLE
  25. ROSUVASTATIN. [Concomitant]
     Active Substance: ROSUVASTATIN
     Route: 058
  26. HYDROMORPHONE [Concomitant]
     Active Substance: HYDROMORPHONE
  27. PROCHLORPERAZINE. [Concomitant]
     Active Substance: PROCHLORPERAZINE
  28. PIPERACILLIN/TAZOBACTAM [Concomitant]
     Active Substance: PIPERACILLIN SODIUM\TAZOBACTAM SODIUM
  29. METOCLOPRAMIDE. [Concomitant]
     Active Substance: METOCLOPRAMIDE
  30. NOREPINEPHRINE. [Concomitant]
     Active Substance: NOREPINEPHRINE
  31. VANCOMYCIN [Concomitant]
     Active Substance: VANCOMYCIN

REACTIONS (7)
  - Atrial fibrillation [Fatal]
  - Hypotension [Fatal]
  - Nausea [Fatal]
  - Diarrhoea [Fatal]
  - Enteritis [Fatal]
  - Escherichia test positive [Fatal]
  - Pyrexia [Fatal]
